FAERS Safety Report 8257846-1 (Version None)
Quarter: 2012Q2

REPORT INFORMATION
  Report Type: 
  Country: None (occurrence: None)
  Receive Date: 20120404
  Receipt Date: 20120323
  Transmission Date: 20120825
  Serious: Yes (Other)
  Sender: FDA-Public Use
  Company Number: US-RB-036811-12

PATIENT
  Age: 27 Year
  Sex: Male

DRUGS (1)
  1. DELSYM [Suspect]
     Indication: DRUG ABUSE
     Dosage: TOOK FOR OVER A WEEK THIS TIME
     Route: 048

REACTIONS (12)
  - AGGRESSION [None]
  - BIPOLAR DISORDER [None]
  - DRUG ABUSE [None]
  - STUPOR [None]
  - BIPOLAR I DISORDER [None]
  - INCORRECT DRUG ADMINISTRATION DURATION [None]
  - INCOHERENT [None]
  - MANIA [None]
  - PSYCHOMOTOR HYPERACTIVITY [None]
  - CONFUSIONAL STATE [None]
  - ABNORMAL BEHAVIOUR [None]
  - EUPHORIC MOOD [None]
